FAERS Safety Report 12113175 (Version 1)
Quarter: 2016Q1

REPORT INFORMATION
  Report Type: Report from Study
  Country: US (occurrence: US)
  Receive Date: 20160225
  Receipt Date: 20160225
  Transmission Date: 20160526
  Serious: No
  Sender: FDA-Public Use
  Company Number: US-AMGEN-USASL2016019933

PATIENT
  Age: 31 Year
  Sex: Female

DRUGS (1)
  1. ENBREL [Suspect]
     Active Substance: ETANERCEPT
     Indication: RHEUMATOID ARTHRITIS
     Dosage: 50 MG, QWK
     Route: 065
     Dates: start: 20151017

REACTIONS (7)
  - Vertigo [Not Recovered/Not Resolved]
  - Balance disorder [Unknown]
  - Maternal exposure during pregnancy [Unknown]
  - Nausea [Not Recovered/Not Resolved]
  - Dizziness [Unknown]
  - Tongue biting [Unknown]
  - Speech disorder [Unknown]

NARRATIVE: CASE EVENT DATE: 201510
